FAERS Safety Report 26078665 (Version 1)
Quarter: 2025Q4

REPORT INFORMATION
  Report Type: Spontaneous
  Country: US (occurrence: US)
  Receive Date: 20251123
  Receipt Date: 20251123
  Transmission Date: 20260118
  Serious: No
  Sender: GALPHARM INTERNATIONAL
  Company Number: US-PERRIGO-24US011125

PATIENT
  Sex: Female

DRUGS (3)
  1. OPILL [Suspect]
     Active Substance: NORGESTREL
     Indication: Pain
     Dosage: UNKNOWN, UNKNOWN
     Route: 048
     Dates: start: 2024, end: 2024
  2. OPILL [Suspect]
     Active Substance: NORGESTREL
     Indication: Discomfort
  3. OPILL [Suspect]
     Active Substance: NORGESTREL
     Indication: Heavy menstrual bleeding

REACTIONS (1)
  - Drug ineffective for unapproved indication [Unknown]

NARRATIVE: CASE EVENT DATE: 20240101
